FAERS Safety Report 4393435-7 (Version None)
Quarter: 2004Q3

REPORT INFORMATION
  Report Type: 
  Country: None (occurrence: None)
  Receive Date: 20040701
  Receipt Date: 20040625
  Transmission Date: 20050211
  Serious: Yes (Other)
  Sender: FDA-Public Use
  Company Number: 2004218938JP

PATIENT

DRUGS (2)
  1. PROVERA [Suspect]
     Dates: start: 20031101
  2. PREMARIN [Suspect]
     Dates: start: 20031101

REACTIONS (1)
  - GASTRIC POLYPS [None]
